FAERS Safety Report 23820038 (Version 1)
Quarter: 2024Q2

REPORT INFORMATION
  Report Type: Spontaneous
  Country: TR (occurrence: TR)
  Receive Date: 20240506
  Receipt Date: 20240506
  Transmission Date: 20240716
  Serious: Yes (Hospitalization, Other)
  Sender: FDA-Public Use
  Company Number: TR-UCBSA-2024021497

PATIENT
  Age: 41 Year
  Sex: Female

DRUGS (3)
  1. LEVETIRACETAM [Suspect]
     Active Substance: LEVETIRACETAM
     Indication: Epilepsy
     Dosage: 500 MILLIGRAM DAILY
  2. QUETIAPINE [Concomitant]
     Active Substance: QUETIAPINE
     Indication: Generalised anxiety disorder
     Dosage: 300 MILLIGRAM DAILY
  3. ALPRAZOLAM [Concomitant]
     Active Substance: ALPRAZOLAM
     Indication: Generalised anxiety disorder
     Dosage: 0.5 MILLIGRAM DAILY

REACTIONS (2)
  - Status epilepticus [Recovered/Resolved]
  - Treatment noncompliance [Unknown]
